FAERS Safety Report 8325618-5 (Version None)
Quarter: 2012Q2

REPORT INFORMATION
  Report Type: 
  Country: None (occurrence: None)
  Receive Date: 20120501
  Receipt Date: 20120423
  Transmission Date: 20120825
  Serious: Yes (Hospitalization, Other)
  Sender: FDA-Public Use
  Company Number: US-ASTRAZENECA-2011SE75009

PATIENT
  Age: 46 Year
  Sex: Female

DRUGS (14)
  1. LEVOTHYROXINE SODIUM [Concomitant]
  2. CRESTOR [Suspect]
     Route: 048
  3. PLAVIX [Concomitant]
  4. ENALAPRIL MALEATE AND HYDROCHLOROTHIAZIDE [Concomitant]
     Dosage: 5+12.5 MG DAILY
  5. NAPROSYN [Concomitant]
  6. SAVELLA [Concomitant]
  7. PEPCID [Concomitant]
  8. KLONOPIN [Concomitant]
  9. SOMA [Concomitant]
  10. MORPHINE [Concomitant]
  11. SIMVASTATIN [Concomitant]
  12. MORPHINE [Concomitant]
  13. ASPIRIN [Concomitant]
  14. CARVEDILOL [Concomitant]

REACTIONS (3)
  - ACUTE MYOCARDIAL INFARCTION [None]
  - CHEST PAIN [None]
  - ISCHAEMIC CARDIOMYOPATHY [None]
